FAERS Safety Report 4486532-9 (Version None)
Quarter: 2004Q4

REPORT INFORMATION
  Report Type: 
  Country: None (occurrence: None)
  Receive Date: 20041021
  Receipt Date: 20041011
  Transmission Date: 20050328
  Serious: Yes (Hospitalization)
  Sender: FDA-Public Use
  Company Number: K200401551

PATIENT
  Age: 76 Year
  Sex: Female

DRUGS (11)
  1. ALTACE [Suspect]
     Indication: ESSENTIAL HYPERTENSION
     Dosage: 5 MG, BID, ORAL
     Route: 048
     Dates: start: 20000101, end: 20040514
  2. SOTALEX MITE (SOTALOL HYDROCHLORIDE) TABLET, 80MG [Suspect]
     Indication: SUPRAVENTRICULAR TACHYCARDIA
     Dosage: 80 MG, QD,ORAL
     Route: 048
     Dates: start: 20040301, end: 20040514
  3. NOOTROP (PIRACETAM) TABLET, 800MG [Suspect]
     Indication: CEREBRAL INFARCTION
     Dosage: 800 MG, BID, ORAL
     Route: 048
     Dates: start: 20040301
  4. REMINYL [Suspect]
     Indication: DEMENTIA ALZHEIMER'S TYPE
     Dosage: 4 MG, QD, ORAL
     Route: 048
     Dates: start: 20040301
  5. ACTRAPID HUMAN (INSULIN HUMAN) [Concomitant]
  6. ALDACTONE [Concomitant]
  7. FALITHROM ^FAHLBERG^ (PHENPROCOUMON) TABLET [Concomitant]
  8. PANTOZOL (PANTOPRAZOLE SODIUM) TABLET [Concomitant]
  9. PROTAPHANE MC (INSULIN INJECTION, ISOPHANE) INJECTION [Concomitant]
  10. SORTIS ^GOEDECKE^ (ATORVASTATIN CALCIUM) TABLET [Concomitant]
  11. THIOCTACID (THIOCTIC ACID) TABLET [Concomitant]

REACTIONS (22)
  - ALANINE AMINOTRANSFERASE ABNORMAL [None]
  - AORTIC VALVE REPLACEMENT [None]
  - ASPARTATE AMINOTRANSFERASE ABNORMAL [None]
  - BILIRUBIN CONJUGATED INCREASED [None]
  - BLOOD CHLORIDE DECREASED [None]
  - BLOOD CREATININE INCREASED [None]
  - BLOOD SODIUM DECREASED [None]
  - BRADYARRHYTHMIA [None]
  - BRADYCARDIA [None]
  - C-REACTIVE PROTEIN INCREASED [None]
  - CEREBRAL INFARCTION [None]
  - CEREBRAL ISCHAEMIA [None]
  - COMA [None]
  - DEMENTIA ALZHEIMER'S TYPE [None]
  - DRUG INTERACTION [None]
  - HAEMOGLOBIN ABNORMAL [None]
  - HYPERGLYCAEMIA [None]
  - HYPOTENSION [None]
  - NAUSEA [None]
  - RED BLOOD CELL COUNT DECREASED [None]
  - SUPRAVENTRICULAR TACHYCARDIA [None]
  - VOMITING [None]
